FAERS Safety Report 9391347 (Version 5)
Quarter: 2013Q4

REPORT INFORMATION
  Report Type: Spontaneous
  Country: US (occurrence: US)
  Receive Date: 20130709
  Receipt Date: 20131018
  Transmission Date: 20140711
  Serious: Yes (Hospitalization, Other)
  Sender: FDA-Public Use
  Company Number: US-PFIZER INC-2013201594

PATIENT
  Age: 75 Year
  Sex: Male
  Weight: 89.34 kg

DRUGS (1)
  1. LYRICA [Suspect]
     Indication: DIABETIC NEUROPATHY
     Dosage: 100 MG, 3X/DAY
     Route: 048

REACTIONS (3)
  - Gallbladder disorder [Unknown]
  - Pancreas infection [Unknown]
  - Pulmonary thrombosis [Unknown]
